FAERS Safety Report 9493813 (Version 2)
Quarter: 2013Q3

REPORT INFORMATION
  Report Type: Spontaneous
  Country: JP (occurrence: JP)
  Receive Date: 20130902
  Receipt Date: 20130903
  Transmission Date: 20140515
  Serious: Yes (Hospitalization)
  Sender: FDA-Public Use
  Company Number: JP-UCBSA-096446

PATIENT
  Age: 59 Year
  Sex: Female

DRUGS (1)
  1. CIMZIA [Suspect]
     Indication: RHEUMATOID ARTHRITIS
     Dosage: DOSE STRENGTH: 200MG SYRINGE
     Route: 058
     Dates: start: 20130404

REACTIONS (3)
  - Urinary tract infection [Unknown]
  - Creatinine renal clearance decreased [Unknown]
  - Pyrexia [Recovering/Resolving]
